FAERS Safety Report 16539018 (Version 1)
Quarter: 2019Q3

REPORT INFORMATION
  Report Type: Spontaneous
  Country: US (occurrence: US)
  Receive Date: 20190705
  Receipt Date: 20190705
  Transmission Date: 20191004
  Serious: No
  Sender: FDA-Public Use
  Company Number: None

PATIENT
  Age: 44 Year
  Sex: Male
  Weight: 112.5 kg

DRUGS (3)
  1. DEXTROAMPHET SACCHARAT, AMPHET ASPARTATE, DEXTROAMPHET SULFATE AND AMPHET SULFAT [Suspect]
     Active Substance: AMPHETAMINE ASPARTATE\AMPHETAMINE SULFATE\DEXTROAMPHETAMINE SACCHARATE\DEXTROAMPHETAMINE SULFATE
     Indication: NARCOLEPSY
     Dosage: ?          QUANTITY:60 TABLET(S);?
     Route: 048
     Dates: start: 20190626, end: 20190704
  2. MULTIVITAMIN [Concomitant]
     Active Substance: VITAMINS
  3. ARMODAFANIL [Concomitant]

REACTIONS (4)
  - Drug ineffective [None]
  - Fatigue [None]
  - Paradoxical drug reaction [None]
  - Product complaint [None]

NARRATIVE: CASE EVENT DATE: 20190626
